FAERS Safety Report 23103030 (Version 1)
Quarter: 2023Q4

REPORT INFORMATION
  Report Type: Spontaneous
  Country: US (occurrence: None)
  Receive Date: 20231023
  Receipt Date: 20231023
  Transmission Date: 20240110
  Serious: Yes (Life-Threatening, Hospitalization, Other)
  Sender: FDA-Public Use
  Company Number: None

PATIENT
  Sex: Female

DRUGS (1)
  1. NEXPLANON [Suspect]
     Active Substance: ETONOGESTREL

REACTIONS (6)
  - Heavy menstrual bleeding [None]
  - Heavy menstrual bleeding [None]
  - Weight increased [None]
  - Fatigue [None]
  - Acne [None]
  - Ectopic pregnancy [None]

NARRATIVE: CASE EVENT DATE: 20221207
